FAERS Safety Report 6252393-0 (Version None)
Quarter: 2009Q2

REPORT INFORMATION
  Report Type: 
  Country: None (occurrence: None)
  Receive Date: 20090629
  Receipt Date: 20090629
  Transmission Date: 20091009
  Serious: Yes (Disabling)
  Sender: FDA-Public Use
  Company Number: None

PATIENT
  Sex: Male
  Weight: 81.6475 kg

DRUGS (1)
  1. ZICAM NASAL GEL (ZINCUM GLUCONICUM 2X), MATRIX INITIATIVES, INC. [Suspect]
     Indication: NASOPHARYNGITIS
     Dosage: 1 PUMP/NOSTRIL EVERY 4 HOURS NOSE
     Route: 045
     Dates: start: 20030211, end: 20050213

REACTIONS (2)
  - AGEUSIA [None]
  - ANOSMIA [None]
